FAERS Safety Report 12788513 (Version 4)
Quarter: 2016Q4

REPORT INFORMATION
  Report Type: Report from Study
  Country: LB (occurrence: LB)
  Receive Date: 20160928
  Receipt Date: 20161213
  Transmission Date: 20170207
  Serious: Yes (Death, Hospitalization, Other)
  Sender: FDA-Public Use
  Company Number: PHHY2016LB130966

PATIENT
  Age: 77 Year
  Sex: Female

DRUGS (3)
  1. ENTRESTO [Suspect]
     Active Substance: SACUBITRIL\VALSARTAN
     Indication: PRODUCT USED FOR UNKNOWN INDICATION
     Dosage: 50 MG, BID
     Route: 048
     Dates: start: 20160613, end: 20160802
  2. ENTRESTO [Suspect]
     Active Substance: SACUBITRIL\VALSARTAN
     Dosage: 100 MG, BID
     Route: 048
     Dates: start: 20160803, end: 20160914
  3. ENTRESTO [Suspect]
     Active Substance: SACUBITRIL\VALSARTAN
     Dosage: 50 MG, BID
     Route: 048
     Dates: start: 20160915

REACTIONS (6)
  - Angina pectoris [Recovering/Resolving]
  - Death [Fatal]
  - Pulmonary oedema [Unknown]
  - Pain in extremity [Unknown]
  - Palpitations [Unknown]
  - Renal impairment [Unknown]

NARRATIVE: CASE EVENT DATE: 20160914
